FAERS Safety Report 7774428-6 (Version None)
Quarter: 2011Q3

REPORT INFORMATION
  Report Type: 
  Country: None (occurrence: None)
  Receive Date: 20110923
  Receipt Date: 20110921
  Transmission Date: 20111222
  Serious: Yes (Other)
  Sender: FDA-Public Use
  Company Number: ES-ABBOTT-11P-144-0856509-00

PATIENT
  Age: 44 Year
  Sex: Female

DRUGS (1)
  1. HUMIRA [Suspect]
     Indication: CROHN'S DISEASE
     Route: 058
     Dates: start: 20070705, end: 20110531

REACTIONS (4)
  - ARTHRALGIA [None]
  - LUPUS-LIKE SYNDROME [None]
  - ASTHENIA [None]
  - ONYCHOLYSIS [None]
